FAERS Safety Report 9998634 (Version 2)
Quarter: 2014Q2

REPORT INFORMATION
  Report Type: Spontaneous
  Country: US (occurrence: US)
  Receive Date: 20140312
  Receipt Date: 20140414
  Transmission Date: 20141212
  Serious: No
  Sender: FDA-Public Use
  Company Number: US-BIOGENIDEC-2014BI019122

PATIENT
  Age: 46 Year
  Sex: Female

DRUGS (4)
  1. TECFIDERA [Suspect]
     Indication: RELAPSING-REMITTING MULTIPLE SCLEROSIS
     Dates: start: 20140222, end: 20140222
  2. TECFIDERA [Suspect]
     Indication: RELAPSING-REMITTING MULTIPLE SCLEROSIS
     Route: 048
     Dates: start: 20140307, end: 20140309
  3. AVONEX [Concomitant]
     Indication: MULTIPLE SCLEROSIS
     Route: 030
     Dates: start: 20120711, end: 20140219
  4. AVONEX [Concomitant]
     Indication: MULTIPLE SCLEROSIS
     Route: 030
     Dates: start: 19990901, end: 20121201

REACTIONS (11)
  - Mobility decreased [Recovered/Resolved]
  - Tremor [Recovered/Resolved]
  - Hyperhidrosis [Recovered/Resolved]
  - Aphagia [Recovered/Resolved]
  - Dysstasia [Recovered/Resolved]
  - Gastric disorder [Recovered/Resolved]
  - Weight decreased [Recovered/Resolved]
  - General symptom [Unknown]
  - Red blood cell count decreased [Unknown]
  - Malaise [Recovered/Resolved]
  - White blood cell count decreased [Unknown]
